FAERS Safety Report 18016593 (Version 1)
Quarter: 2020Q3

REPORT INFORMATION
  Report Type: Spontaneous
  Country: US (occurrence: US)
  Receive Date: 20200713
  Receipt Date: 20200713
  Transmission Date: 20201103
  Serious: Yes (Hospitalization, Other)
  Sender: FDA-Public Use
  Company Number: US-PARATEK PHARMACEUTICALS, INC.-2020PTK00077

PATIENT
  Age: 33 Year
  Sex: Male
  Weight: 64.6 kg

DRUGS (35)
  1. SEROQUEL [Concomitant]
     Active Substance: QUETIAPINE FUMARATE
     Dosage: 50 MG, 1X/DAY
     Route: 048
  2. ZITHROMAX [Concomitant]
     Active Substance: AZITHROMYCIN DIHYDRATE
     Dosage: 250 MG, 3X/WEEK ON MONDAY, WEDNESDAY, FRIDAY
     Route: 048
     Dates: end: 2020
  3. BEDAQUILINE [Concomitant]
     Active Substance: BEDAQUILINE
     Dosage: 200 MG, 3X/WEEK ON MONDAY, WEDNESDAY, FRIDAY
     Route: 048
  4. LOVENOX [Concomitant]
     Active Substance: ENOXAPARIN SODIUM
     Dosage: 50 MG, 2X/DAY
     Route: 058
  5. VITAMIN B6 [Concomitant]
     Active Substance: PYRIDOXINE HYDROCHLORIDE
     Dosage: 50 MG, 1X/DAY
     Route: 048
  6. TYLENOL [Concomitant]
     Active Substance: ACETAMINOPHEN
     Dosage: 325 MG?650 MG, AS NEEDED EVERY 6 HOURS
     Route: 048
  7. ADDERALL [Concomitant]
     Active Substance: AMPHETAMINE ASPARTATE\AMPHETAMINE SULFATE\DEXTROAMPHETAMINE SACCHARATE\DEXTROAMPHETAMINE SULFATE
     Dosage: 10 MG, 2X/DAY
     Route: 048
  8. PRILOSEC [Concomitant]
     Active Substance: OMEPRAZOLE MAGNESIUM
     Dosage: 40 MG, 2X/DAY
  9. PRAVACHOL [Concomitant]
     Active Substance: PRAVASTATIN SODIUM
     Dosage: 80 MG, 1X/DAY
     Route: 048
  10. NUZYRA [Suspect]
     Active Substance: OMADACYCLINE
     Indication: MYCOBACTERIAL INFECTION
     Dosage: 300 MG, 1X/DAY
     Route: 048
     Dates: start: 202001
  11. CYMBALTA [Concomitant]
     Active Substance: DULOXETINE HYDROCHLORIDE
     Dosage: 60 MG, 1X/DAY
     Route: 048
  12. FERROUS GLUCONATE [Concomitant]
     Active Substance: FERROUS GLUCONATE
     Dosage: 324 MG, 1X/DAY
     Route: 048
  13. HUMALOG [Concomitant]
     Active Substance: INSULIN LISPRO
     Dosage: 0?6 U, BEFORE EVERY MEAL AND AT BEDTIME, AS DIRECTED
     Route: 058
     Dates: end: 2020
  14. CLOFAZIMINE [Concomitant]
     Active Substance: CLOFAZIMINE
     Dosage: 100 MG, 1X/DAY
     Route: 048
  15. ALBUTEROL. [Concomitant]
     Active Substance: ALBUTEROL
     Dosage: INHALE 2 PUFFS INTO THE LUNGS EVERY 6 HOURS AS NEEDED
  16. DELTASONE [Concomitant]
     Active Substance: PREDNISONE
     Dosage: 10 MG, 1X/DAY
     Route: 048
  17. DEMADEX [Concomitant]
     Active Substance: TORSEMIDE
     Dosage: 40 MG, 2X/DAY
     Route: 048
  18. ADVAIR DISKUS [Concomitant]
     Active Substance: FLUTICASONE PROPIONATE\SALMETEROL XINAFOATE
     Dosage: UNK
  19. CREON [Concomitant]
     Active Substance: PANCRELIPASE AMYLASE\PANCRELIPASE LIPASE\PANCRELIPASE PROTEASE
     Dosage: 6 CAPSULES, 3X/DAY
     Route: 048
  20. ZOVIRAX [Concomitant]
     Active Substance: ACYCLOVIR
     Dosage: 400 MG, 2X/DAY
     Route: 048
  21. VITAMIN D3 [Concomitant]
     Active Substance: CHOLECALCIFEROL
     Dosage: 1000 U, 1X/DAY
     Route: 048
  22. CRESEMBA [Concomitant]
     Active Substance: ISAVUCONAZONIUM SULFATE
     Dosage: 372 MG, 1X/DAY
     Route: 048
  23. MAG?OX [Concomitant]
     Active Substance: MAGNESIUM OXIDE
     Dosage: 800 MG, 3X/DAY
     Route: 048
  24. MELATONIN [Concomitant]
     Active Substance: MELATONIN
     Dosage: 5 MG, 1X/DAY
     Route: 048
  25. PROGRAF [Concomitant]
     Active Substance: TACROLIMUS
     Dosage: 1 MG, 2X/DAY
     Route: 048
  26. CIALIS [Concomitant]
     Active Substance: TADALAFIL
     Dosage: 5 MG, 1X/DAY AS NEEDED
     Route: 048
  27. NEURONTIN [Concomitant]
     Active Substance: GABAPENTIN
     Dosage: 800 MG, 1X/DAY EVERY MORNING
     Route: 048
  28. NEURONTIN [Concomitant]
     Active Substance: GABAPENTIN
     Dosage: 1200 MG, 1X/DAY EVERY EVENING
     Route: 048
  29. LOPRESSOR [Concomitant]
     Active Substance: METOPROLOL TARTRATE
     Dosage: 75 MG, 2X/DAY
  30. SODIUM CHLORIDE. [Concomitant]
     Active Substance: SODIUM CHLORIDE
     Dosage: 3 ML, 2X/DAY
  31. ALBUTEROL. [Concomitant]
     Active Substance: ALBUTEROL
     Dosage: TAKE 3 ML (2.5 TOTAL) BY NEBULIZATION EVERY 6 HOURS AS NEEDED
  32. MEPRON [Concomitant]
     Active Substance: ATOVAQUONE
     Dosage: 1500 MG, 1X/DAY
     Route: 048
  33. NEURONTIN [Concomitant]
     Active Substance: GABAPENTIN
     Dosage: 800 MG, 1X/DAY EVERY AFTERNOON
     Route: 048
  34. SIMETHICONE (DIMETHICONE) [Concomitant]
     Active Substance: DIMETHICONE
     Dosage: 80 MG, 4X/DAY AS NEEDED
     Route: 048
  35. SIVEXTRO [Concomitant]
     Active Substance: TEDIZOLID PHOSPHATE
     Dosage: 200 MG, 1X/DAY
     Route: 048

REACTIONS (16)
  - Cardiac failure [Recovering/Resolving]
  - Anxiety [Recovering/Resolving]
  - Respiratory failure [Recovering/Resolving]
  - Pneumonia [Recovering/Resolving]
  - Candida infection [Unknown]
  - Weight decreased [Not Recovered/Not Resolved]
  - Acute kidney injury [Recovering/Resolving]
  - Off label use [Not Recovered/Not Resolved]
  - Implant site extravasation [Recovering/Resolving]
  - Erectile dysfunction [Not Recovered/Not Resolved]
  - Insomnia [Not Recovered/Not Resolved]
  - Aspiration [Recovering/Resolving]
  - Neuropathy peripheral [Not Recovered/Not Resolved]
  - Acute lung injury [Recovering/Resolving]
  - Sinus tachycardia [Recovering/Resolving]
  - Incorrect product administration duration [Not Recovered/Not Resolved]

NARRATIVE: CASE EVENT DATE: 2020
